FAERS Safety Report 6114929-X (Version None)
Quarter: 2009Q1

REPORT INFORMATION
  Report Type: 
  Country: None (occurrence: None)
  Receive Date: 20090313
  Receipt Date: 20090302
  Transmission Date: 20090719
  Serious: Yes (Hospitalization)
  Sender: FDA-Public Use
  Company Number: DE-TEVA-187086ISR

PATIENT
  Sex: Male

DRUGS (2)
  1. ETOPOSIDE [Suspect]
     Indication: MEDULLOBLASTOMA
     Dates: start: 20080820
  2. TEMOZOLOMIDE [Suspect]
     Indication: MEDULLOBLASTOMA
     Route: 048
     Dates: start: 20080820

REACTIONS (2)
  - ACCIDENTAL OVERDOSE [None]
  - HEADACHE [None]
